FAERS Safety Report 23518787 (Version 1)
Quarter: 2024Q1

REPORT INFORMATION
  Report Type: Spontaneous
  Country: US (occurrence: US)
  Receive Date: 20240213
  Receipt Date: 20240213
  Transmission Date: 20240410
  Serious: Yes (Hospitalization, Other)
  Sender: FDA-Public Use
  Company Number: US-ORG100016242-2024000044

PATIENT
  Sex: Female

DRUGS (7)
  1. EXPAREL [Suspect]
     Active Substance: BUPIVACAINE
     Indication: Transversus abdominis plane block
     Route: 050
  2. BUPIVACAINE [Suspect]
     Active Substance: BUPIVACAINE
     Indication: Nerve block
     Dosage: 20 ML PER SIDE (PATIENTS }= TO 70 KG) OR 15 ML 0.25% PER SIDE (PATIENTS { 70 KG)
     Route: 065
  3. BUPIVACAINE [Suspect]
     Active Substance: BUPIVACAINE
     Indication: Nerve block
     Dosage: 30CC ADMIXED WITH 20CC OF LB,0.15CC OF 1:1000 EPINEPHRINE,50CC NORMAL SALINE
     Route: 050
  4. EPINEPHRINE [Suspect]
     Active Substance: EPINEPHRINE
     Indication: Transversus abdominis plane block
     Dosage: 0.15CC OF 1:1000 EPINEPHRINE ADMIXED WITH 20CC OF LB, 30CC OF 0.25% BUPIVACAINE,50CC NORMAL SALINE
     Route: 050
  5. SODIUM CHLORIDE [Suspect]
     Active Substance: SODIUM CHLORIDE
     Indication: Transversus abdominis plane block
     Dosage: 50CC NORMAL SALINE ADMIXED WITH 20CC OF LB, 30CC OF 0.25% BUPIVACAINE, 0.15CC OF 1:1000 EPINEPHRINE
     Route: 050
  6. PROPOFOL [Concomitant]
     Active Substance: PROPOFOL
     Indication: General anaesthesia
     Dosage: 100-150 MCG/KG/MIN
     Route: 050
  7. KETAMINE [Concomitant]
     Active Substance: KETAMINE
     Indication: General anaesthesia
     Dosage: 0.15-0.30 MG/KG/H
     Route: 050

REACTIONS (8)
  - Hospitalisation [Unknown]
  - Flap necrosis [Unknown]
  - Surgery [Unknown]
  - Venous thrombosis [Unknown]
  - Post procedural complication [Unknown]
  - Post procedural haematoma [Unknown]
  - Wound dehiscence [Unknown]
  - Labelled drug-drug interaction medication error [Unknown]
